FAERS Safety Report 22600643 (Version 1)
Quarter: 2023Q2

REPORT INFORMATION
  Report Type: Spontaneous
  Country: CH (occurrence: None)
  Receive Date: 20230614
  Receipt Date: 20230614
  Transmission Date: 20230722
  Serious: Yes (Other)
  Sender: FDA-Public Use
  Company Number: 2023A109572

PATIENT
  Age: 29660 Day
  Sex: Female

DRUGS (1)
  1. BUDESONIDE\FORMOTEROL FUMARATE DIHYDRATE [Suspect]
     Active Substance: BUDESONIDE\FORMOTEROL FUMARATE DIHYDRATE
     Dosage: DOSE 200/6 UG, FREQUENCY UNKNOWN UNKNOWN
     Route: 055
     Dates: start: 20230209, end: 20230223

REACTIONS (4)
  - Dyspnoea exertional [Recovered/Resolved with Sequelae]
  - Device delivery system issue [Unknown]
  - Device malfunction [Unknown]
  - Device use issue [Unknown]

NARRATIVE: CASE EVENT DATE: 20230209
